FAERS Safety Report 12939660 (Version 1)
Quarter: 2016Q4

REPORT INFORMATION
  Report Type: Report from Study
  Country: IN (occurrence: IN)
  Receive Date: 20161114
  Receipt Date: 20161114
  Transmission Date: 20170207
  Serious: Yes (Death)
  Sender: FDA-Public Use
  Company Number: PHHY2016IN085256

PATIENT
  Age: 51 Year
  Sex: Female

DRUGS (1)
  1. GLIVEC [Suspect]
     Active Substance: IMATINIB MESYLATE
     Indication: CHRONIC MYELOID LEUKAEMIA
     Dosage: 400 MG, UNK
     Route: 065

REACTIONS (8)
  - Skin swelling [Unknown]
  - Ear pain [Unknown]
  - Haemoglobin decreased [Unknown]
  - White blood cell count increased [Unknown]
  - Drug intolerance [Unknown]
  - Pain [Unknown]
  - Death [Fatal]
  - Pain of skin [Unknown]

NARRATIVE: CASE EVENT DATE: 20161031
